FAERS Safety Report 13734913 (Version 2)
Quarter: 2017Q3

REPORT INFORMATION
  Report Type: Spontaneous
  Country: JP (occurrence: JP)
  Receive Date: 20170710
  Receipt Date: 20170728
  Transmission Date: 20171127
  Serious: Yes (Hospitalization)
  Sender: FDA-Public Use
  Company Number: JP-ROCHE-1960033

PATIENT
  Age: 62 Year
  Sex: Male

DRUGS (1)
  1. RIVOTRIL [Suspect]
     Active Substance: CLONAZEPAM
     Indication: EPILEPSY
     Dosage: DOSAGE IS UNCERTAIN.
     Route: 048

REACTIONS (3)
  - Extradural haematoma [Unknown]
  - Alcoholism [Unknown]
  - Therapy cessation [Unknown]
